FAERS Safety Report 25919398 (Version 1)
Quarter: 2025Q4

REPORT INFORMATION
  Report Type: Spontaneous
  Country: CA (occurrence: CA)
  Receive Date: 20251014
  Receipt Date: 20251014
  Transmission Date: 20260117
  Serious: Yes (Other)
  Sender: HIKMA
  Company Number: CA-HIKMA PHARMACEUTICALS-CA-H14001-25-11104

PATIENT

DRUGS (66)
  1. AZACITIDINE [Suspect]
     Active Substance: AZACITIDINE
     Indication: Acute myeloid leukaemia
     Dosage: 75.0 MG/M2
     Route: 065
  2. AZACITIDINE [Suspect]
     Active Substance: AZACITIDINE
     Dosage: 75.0 MG/M2
     Route: 065
  3. VENETOCLAX [Suspect]
     Active Substance: VENETOCLAX
     Dosage: 100.0 MILLIGRAM
     Route: 048
  4. VENETOCLAX [Suspect]
     Active Substance: VENETOCLAX
     Dosage: 150.0 MILLIGRAM
     Route: 048
  5. VENETOCLAX [Suspect]
     Active Substance: VENETOCLAX
     Indication: Acute myeloid leukaemia
     Dosage: 400.0 MILLIGRAM
     Route: 048
  6. VENETOCLAX [Suspect]
     Active Substance: VENETOCLAX
     Dosage: 500.0 MILLIGRAM
     Route: 048
  7. ACETAMINOPHEN [Concomitant]
     Active Substance: ACETAMINOPHEN
     Indication: Neutropenia
     Dosage: 1000.0 MILLIGRAM
     Route: 048
  8. ACETAMINOPHEN [Concomitant]
     Active Substance: ACETAMINOPHEN
     Dosage: 650.0 MILLIGRAM
     Route: 048
  9. ACETAZOLAMIDE SODIUM [Concomitant]
     Active Substance: ACETAZOLAMIDE SODIUM
     Indication: Respiratory failure
     Dosage: 250.0 MILLIGRAM, ONE EVERY 5 DAYS
     Route: 065
  10. .ALPHA.-ACETYLDIGOXIN [Concomitant]
     Active Substance: .ALPHA.-ACETYLDIGOXIN
     Dosage: 0.125 MILLIGRAM
     Route: 048
  11. .ALPHA.-ACETYLDIGOXIN [Concomitant]
     Active Substance: .ALPHA.-ACETYLDIGOXIN
     Indication: Atrial fibrillation
     Dosage: 250.0 MICROGRAM
     Route: 042
  12. .ALPHA.-ACETYLDIGOXIN [Concomitant]
     Active Substance: .ALPHA.-ACETYLDIGOXIN
     Dosage: 500.0 MICROGRAM
     Route: 042
  13. BISACODYL [Concomitant]
     Active Substance: BISACODYL
     Indication: Constipation prophylaxis
     Dosage: 10.0 MILLIGRAM
     Route: 054
  14. CALCIUM CHLORIDE [Concomitant]
     Active Substance: CALCIUM CHLORIDE
     Indication: Neutropenia
     Dosage: 125.0 ML
     Route: 042
  15. CEFTRIAXONE SODIUM [Concomitant]
     Active Substance: CEFTRIAXONE SODIUM
     Indication: Neutropenia
     Dosage: 1 GRAM
     Route: 042
  16. FENTANYL [Concomitant]
     Active Substance: FENTANYL
     Indication: Respiratory failure
     Dosage: UNKNOWN, ONE EVERY ONE HOUR
     Route: 042
  17. FILGRASTIM [Concomitant]
     Active Substance: FILGRASTIM
     Indication: Neutropenia
     Dosage: 300.0 MICROGRAM
     Route: 058
  18. FILGRASTIM [Concomitant]
     Active Substance: FILGRASTIM
     Dosage: 480.0 MICROGRAM
     Route: 058
  19. FUROSEMIDE [Concomitant]
     Active Substance: FUROSEMIDE
     Indication: Cardiac failure
     Dosage: 20.0 MILLIGRAM, ONE EVERY 6 HOURS
     Route: 042
  20. HYDRALAZINE [Concomitant]
     Active Substance: HYDRALAZINE HYDROCHLORIDE
     Indication: Cardiac failure
     Dosage: 10.0 MILLIGRAM AS REQUIRED
     Route: 042
  21. IOHEXOL [Concomitant]
     Active Substance: IOHEXOL
     Indication: Neutropenia
     Dosage: 1.5 ML
     Route: 042
  22. IPRATROPIUM [Concomitant]
     Active Substance: IPRATROPIUM
     Indication: Respiratory failure
     Dosage: UNKNOWN, ONE EVERY 4 HOURS
     Route: 050
  23. ISAVUCONAZOLE [Concomitant]
     Active Substance: ISAVUCONAZOLE
     Indication: Bronchopulmonary aspergillosis
     Dosage: 200.0 MILLIGRAM
     Route: 042
  24. POTASSIUM CITRATE [Concomitant]
     Active Substance: POTASSIUM CITRATE
     Indication: Neutropenia
     Dosage: 2.5 GRAM, ONE EVERY 5 DAYS
     Route: 048
  25. LANSOPRAZOLE [Concomitant]
     Active Substance: LANSOPRAZOLE
     Indication: Gastrooesophageal reflux prophylaxis
     Dosage: 30.0 MILLIGRAM
     Route: 065
  26. POLYETHYLENE GLYCOLS [Concomitant]
     Active Substance: POLYETHYLENE GLYCOLS
     Indication: Constipation prophylaxis
     Dosage: 17.0 GRAM
     Route: 065
  27. MAGNESIUM SULFATE [Concomitant]
     Active Substance: MAGNESIUM SULFATE
     Dosage: 2.0 GRAM
     Route: 042
  28. MAGNESIUM SULFATE [Concomitant]
     Active Substance: MAGNESIUM SULFATE
     Indication: Neutropenia
     Dosage: 4.0 GRAM
     Route: 042
  29. MAGNESIUM SULFATE [Concomitant]
     Active Substance: MAGNESIUM SULFATE
     Dosage: 4.0 GRAM
     Route: 042
  30. MAGNESIUM SULFATE [Concomitant]
     Active Substance: MAGNESIUM SULFATE
     Dosage: 4000.0 MILLIGRAM
     Route: 042
  31. MEROPENEM [Concomitant]
     Active Substance: MEROPENEM
     Dosage: 1.0 GRAM
     Route: 042
  32. MEROPENEM [Concomitant]
     Active Substance: MEROPENEM
     Indication: Neutropenia
     Dosage: 1.0 GRAM
     Route: 042
  33. MEROPENEM [Concomitant]
     Active Substance: MEROPENEM
     Dosage: 500.0 MILLIGRAM
     Route: 042
  34. METOPROLOL [Concomitant]
     Active Substance: METOPROLOL
     Dosage: 100.0 MILLIGRAM, ONE EVERY 5 DAYS
     Route: 048
  35. METOPROLOL [Concomitant]
     Active Substance: METOPROLOL
     Indication: Atrial fibrillation
     Dosage: 12.5 MILLIGRAM
     Route: 065
  36. METOPROLOL [Concomitant]
     Active Substance: METOPROLOL
     Dosage: 25.0 MILLIGRAM
     Route: 048
  37. METOPROLOL [Concomitant]
     Active Substance: METOPROLOL
     Dosage: 25.0 MILLIGRAM
     Route: 048
  38. METOPROLOL [Concomitant]
     Active Substance: METOPROLOL
     Dosage: 25.0 MILLIGRAM, ONE EVERY 5 DAYS
     Route: 048
  39. METOPROLOL [Concomitant]
     Active Substance: METOPROLOL
     Dosage: 50.0 MILLIGRAM
     Route: 048
  40. MIDAZOLAM [Concomitant]
     Active Substance: MIDAZOLAM
     Indication: Product used for unknown indication
     Dosage: 2.5 MILLIGRAM
     Route: 042
  41. NOREPINEPHRINE [Concomitant]
     Active Substance: NOREPINEPHRINE
     Indication: Hypotension
     Dosage: UNKNOWN
     Route: 042
  42. ONDANSETRON [Concomitant]
     Active Substance: ONDANSETRON
     Indication: Nausea
     Dosage: 8.0 MILLIGRAM
     Route: 048
  43. OXYGEN [Concomitant]
     Active Substance: OXYGEN
     Indication: Hypoxia
     Dosage: UNKNOWN, AS REQUIRED
     Route: 050
  44. PIPERACILLIN SODIUM\TAZOBACTAM SODIUM [Concomitant]
     Active Substance: PIPERACILLIN SODIUM\TAZOBACTAM SODIUM
     Indication: Neutropenia
     Dosage: 3.375 GRAM
     Route: 042
  45. PIPERACILLIN SODIUM\TAZOBACTAM SODIUM [Concomitant]
     Active Substance: PIPERACILLIN SODIUM\TAZOBACTAM SODIUM
     Dosage: 4.5 GRAM
     Route: 042
  46. PIPERACILLIN SODIUM\TAZOBACTAM SODIUM [Concomitant]
     Active Substance: PIPERACILLIN SODIUM\TAZOBACTAM SODIUM
     Dosage: 4.5 GRAM
     Route: 042
  47. POSACONAZOLE [Concomitant]
     Active Substance: POSACONAZOLE
     Indication: Neutropenia
     Dosage: 300.0 MILLIGRAM
     Route: 048
  48. POSACONAZOLE [Concomitant]
     Active Substance: POSACONAZOLE
     Dosage: 300.0 MILLIGRAM
     Route: 048
  49. PROPOFOL [Concomitant]
     Active Substance: PROPOFOL
     Indication: Respiratory failure
     Dosage: UNKNOWN
     Route: 042
  50. RIBOFLAVIN 5^-PHOSPHATE SODIUM [Concomitant]
     Active Substance: RIBOFLAVIN 5^-PHOSPHATE SODIUM
     Indication: Neutropenia
     Dosage: 10.0 MILLIMOL
     Route: 042
  51. RIBOFLAVIN 5^-PHOSPHATE SODIUM [Concomitant]
     Active Substance: RIBOFLAVIN 5^-PHOSPHATE SODIUM
     Dosage: 1500.0 MILLIGRAM
     Route: 048
  52. RIBOFLAVIN 5^-PHOSPHATE SODIUM [Concomitant]
     Active Substance: RIBOFLAVIN 5^-PHOSPHATE SODIUM
     Dosage: 20.0 MILLIMOL
     Route: 065
  53. RIBOFLAVIN 5^-PHOSPHATE SODIUM [Concomitant]
     Active Substance: RIBOFLAVIN 5^-PHOSPHATE SODIUM
     Dosage: 3000.0 MILLIGRAM
     Route: 048
  54. RIBOFLAVIN 5^-PHOSPHATE SODIUM [Concomitant]
     Active Substance: RIBOFLAVIN 5^-PHOSPHATE SODIUM
     Dosage: 40.0 MILLIMOL
     Route: 065
  55. SENNOSIDES [Concomitant]
     Active Substance: SENNOSIDES
     Indication: Constipation prophylaxis
     Dosage: 17.2 MILLIGRAM
     Route: 065
  56. SODIUM CHLORIDE [Concomitant]
     Active Substance: SODIUM CHLORIDE
     Dosage: 1000.0 ML
     Route: 042
  57. SODIUM CHLORIDE [Concomitant]
     Active Substance: SODIUM CHLORIDE
     Dosage: 3.0 ML
     Route: 042
  58. SODIUM CHLORIDE [Concomitant]
     Active Substance: SODIUM CHLORIDE
     Indication: Neutropenia
     Dosage: UNKNOWN
     Route: 042
  59. SODIUM CHLORIDE [Concomitant]
     Active Substance: SODIUM CHLORIDE
     Dosage: UNKNOWN
     Route: 042
  60. SULFAMETHOXAZOLE [Concomitant]
     Active Substance: SULFAMETHOXAZOLE
     Indication: Pneumonia
     Dosage: 2.0 DOSAGE FORMS
     Route: 065
  61. TINZAPARIN [Concomitant]
     Active Substance: TINZAPARIN
     Indication: Thrombosis prophylaxis
     Dosage: UNKNOWN
     Route: 058
  62. VALACYCLOVIR HYDROCHLORIDE [Concomitant]
     Active Substance: VALACYCLOVIR HYDROCHLORIDE
     Indication: Neutropenia
     Dosage: 500.0 MILLIGRAM
     Route: 048
  63. VALACYCLOVIR HYDROCHLORIDE [Concomitant]
     Active Substance: VALACYCLOVIR HYDROCHLORIDE
     Dosage: 500.0 MILLIGRAM
     Route: 065
  64. VANCOMYCIN [Concomitant]
     Active Substance: VANCOMYCIN
     Indication: Neutropenia
     Dosage: 1500MG
     Route: 042
  65. VENETOCLAX [Concomitant]
     Active Substance: VENETOCLAX
     Dosage: 100.0 MILLIGRAM
     Route: 048
  66. VENETOCLAX [Concomitant]
     Active Substance: VENETOCLAX
     Indication: Neutropenia
     Dosage: 400.0 MILLIGRAM
     Route: 048

REACTIONS (1)
  - Respiratory failure [Not Recovered/Not Resolved]
